FAERS Safety Report 16911989 (Version 2)
Quarter: 2021Q1

REPORT INFORMATION
  Report Type: Report from Study
  Country: US (occurrence: US)
  Receive Date: 20191014
  Receipt Date: 20210107
  Transmission Date: 20210419
  Serious: No
  Sender: FDA-Public Use
  Company Number: US-SA-2019SA282236

PATIENT

DRUGS (8)
  1. SARILUMAB [Suspect]
     Active Substance: SARILUMAB
     Dosage: 200 MG, QOW
     Route: 058
  2. TIZANIDINE. [Concomitant]
     Active Substance: TIZANIDINE
     Dosage: UNK
  3. RANITIDINE. [Concomitant]
     Active Substance: RANITIDINE
     Dosage: UNK
  4. PREDNISONE. [Concomitant]
     Active Substance: PREDNISONE
     Dosage: UNK
  5. KETOPROFEN. [Concomitant]
     Active Substance: KETOPROFEN
     Dosage: UNK
  6. METHOTREXATE. [Concomitant]
     Active Substance: METHOTREXATE
     Dosage: UNK
  7. FOLIC ACID. [Concomitant]
     Active Substance: FOLIC ACID
     Dosage: UNK
  8. SARILUMAB [Suspect]
     Active Substance: SARILUMAB
     Indication: RHEUMATOID ARTHRITIS
     Dosage: 200 MG, QOW
     Route: 058
     Dates: start: 2019

REACTIONS (3)
  - Influenza [Recovered/Resolved]
  - Surgery [Unknown]
  - COVID-19 [Recovered/Resolved]

NARRATIVE: CASE EVENT DATE: 202012
